FAERS Safety Report 5607307-0 (Version None)
Quarter: 2008Q1

REPORT INFORMATION
  Report Type: 
  Country: None (occurrence: None)
  Receive Date: 20080128
  Receipt Date: 20080128
  Transmission Date: 20080703
  Serious: Yes (Other)
  Sender: FDA-Public Use
  Company Number: None

PATIENT
  Sex: Female
  Weight: 70.3075 kg

DRUGS (1)
  1. BACTRIM DS [Suspect]
     Indication: URINARY TRACT INFECTION
     Dosage: TAKE ONE-1- TABLET TWICE DAILY PO
     Route: 048
     Dates: start: 20080107, end: 20080116

REACTIONS (9)
  - ARTHRALGIA [None]
  - FEELING ABNORMAL [None]
  - HEADACHE [None]
  - INFLUENZA LIKE ILLNESS [None]
  - ORAL MUCOSAL EXFOLIATION [None]
  - PAIN [None]
  - RASH [None]
  - SKIN EXFOLIATION [None]
  - URTICARIA [None]
